FAERS Safety Report 7738171-1 (Version None)
Quarter: 2011Q3

REPORT INFORMATION
  Report Type: 
  Country: None (occurrence: None)
  Receive Date: 20110908
  Receipt Date: 20110905
  Transmission Date: 20111222
  Serious: Yes (Death, Other)
  Sender: FDA-Public Use
  Company Number: VE-PFIZER INC-2011197678

PATIENT
  Age: 57 Year
  Sex: Male

DRUGS (1)
  1. LIPITOR [Suspect]
     Indication: HYPERCHOLESTEROLAEMIA
     Dosage: DOSE UNKNOWN, DAILY
     Route: 048
     Dates: start: 20100101

REACTIONS (2)
  - INCREASED UPPER AIRWAY SECRETION [None]
  - ASPHYXIA [None]
